FAERS Safety Report 13243118 (Version 2)
Quarter: 2017Q2

REPORT INFORMATION
  Report Type: Spontaneous
  Country: US (occurrence: US)
  Receive Date: 20170216
  Receipt Date: 20170518
  Transmission Date: 20170830
  Serious: Yes (Other)
  Sender: FDA-Public Use
  Company Number: US-TEVA-740548USA

PATIENT
  Sex: Female

DRUGS (1)
  1. METFORMIN EXTENDED RELEASE [Suspect]
     Active Substance: METFORMIN HYDROCHLORIDE
     Indication: DIABETES MELLITUS
     Dosage: 2000 MILLIGRAM DAILY;
     Route: 065
     Dates: start: 201611, end: 201611

REACTIONS (4)
  - Product use complaint [Unknown]
  - Choking [Recovered/Resolved]
  - Foreign body [Unknown]
  - Wrong technique in product usage process [Unknown]
